FAERS Safety Report 15711560 (Version 1)
Quarter: 2018Q4

REPORT INFORMATION
  Report Type: Report from Study
  Country: None (occurrence: US)
  Receive Date: 20181211
  Receipt Date: 20181211
  Transmission Date: 20190205
  Serious: Yes (Other)
  Sender: FDA-Public Use
  Company Number: US-ABBVIE-18K-163-2583448-00

PATIENT
  Age: 24 Year
  Sex: Female

DRUGS (1)
  1. HUMIRA [Suspect]
     Active Substance: ADALIMUMAB
     Indication: HIDRADENITIS
     Route: 058
     Dates: start: 201808

REACTIONS (11)
  - Hyperhidrosis [Unknown]
  - Chest discomfort [Unknown]
  - Injection site erythema [Not Recovered/Not Resolved]
  - Injection site papule [Unknown]
  - Loss of consciousness [Unknown]
  - Injection site induration [Not Recovered/Not Resolved]
  - Injection site discolouration [Unknown]
  - Injection site pain [Recovered/Resolved]
  - Nausea [Unknown]
  - Panic attack [Recovered/Resolved]
  - Injection site warmth [Not Recovered/Not Resolved]

NARRATIVE: CASE EVENT DATE: 2018
